FAERS Safety Report 7098532-3 (Version None)
Quarter: 2010Q4

REPORT INFORMATION
  Report Type: 
  Country: None (occurrence: None)
  Receive Date: 20101112
  Receipt Date: 20101105
  Transmission Date: 20110411
  Serious: Yes (Hospitalization)
  Sender: FDA-Public Use
  Company Number: US-SANOFI-AVENTIS-2010SA055009

PATIENT
  Age: 60 Year
  Sex: Female
  Weight: 60.27 kg

DRUGS (5)
  1. TAXOTERE [Suspect]
     Route: 041
     Dates: start: 20100730, end: 20100730
  2. TAXOTERE [Suspect]
     Route: 041
     Dates: start: 20100806, end: 20100806
  3. COUMADIN [Concomitant]
     Indication: PULMONARY EMBOLISM
     Route: 048
     Dates: start: 20091228
  4. COUMADIN [Concomitant]
     Route: 048
     Dates: start: 20091228
  5. DOCUSATE [Concomitant]
     Route: 048
     Dates: start: 20100215

REACTIONS (3)
  - DEHYDRATION [None]
  - DIARRHOEA [None]
  - PULMONARY HYPERTENSION [None]
